FAERS Safety Report 11105502 (Version 2)
Quarter: 2015Q2

REPORT INFORMATION
  Report Type: Spontaneous
  Country: US (occurrence: US)
  Receive Date: 20150512
  Receipt Date: 20150612
  Transmission Date: 20150821
  Serious: Yes (Hospitalization, Congenital Anomaly, Other)
  Sender: FDA-Public Use
  Company Number: US-UCBSA-2015006167

PATIENT
  Age: 57 Year
  Sex: Female
  Weight: 83 kg

DRUGS (4)
  1. HUMIRA [Concomitant]
     Active Substance: ADALIMUMAB
     Indication: PRODUCT USED FOR UNKNOWN INDICATION
     Dosage: UNK
     Dates: start: 2014, end: 2014
  2. VYVANSE [Concomitant]
     Active Substance: LISDEXAMFETAMINE DIMESYLATE
     Indication: PRODUCT USED FOR UNKNOWN INDICATION
     Dosage: STRENGTH:60 MG
  3. CIMZIA [Suspect]
     Active Substance: CERTOLIZUMAB PEGOL
     Indication: CROHN^S DISEASE
     Dosage: 400 MG, EV 4 WEEKS; STRENGTH: 200 MG
     Route: 058
     Dates: start: 201303, end: 2014
  4. OXYCODONE HCL [Concomitant]
     Active Substance: OXYCODONE HYDROCHLORIDE
     Indication: PRODUCT USED FOR UNKNOWN INDICATION
     Dosage: STRENGTH:30 MG

REACTIONS (16)
  - Tuberculosis [Not Recovered/Not Resolved]
  - Oedema peripheral [Unknown]
  - Arthralgia [Unknown]
  - Psoriasis [Recovered/Resolved]
  - Alopecia [Unknown]
  - Injection site urticaria [Unknown]
  - Gastric polyps [Recovered/Resolved]
  - Depressed level of consciousness [Unknown]
  - Diarrhoea haemorrhagic [Unknown]
  - Weight increased [Recovering/Resolving]
  - Disorientation [Not Recovered/Not Resolved]
  - Injection site bruising [Unknown]
  - Visual impairment [Unknown]
  - Neck pain [Unknown]
  - Diarrhoea [Recovered/Resolved]
  - Headache [Unknown]

NARRATIVE: CASE EVENT DATE: 2013
